FAERS Safety Report 18969273 (Version 5)
Quarter: 2021Q3

REPORT INFORMATION
  Report Type: Report from Study
  Country: IE (occurrence: IE)
  Receive Date: 20210304
  Receipt Date: 20210726
  Transmission Date: 20211014
  Serious: Yes (Other)
  Sender: FDA-Public Use
  Company Number: IE-AMGEN-IRLSL2021032514

PATIENT
  Age: 21 Year
  Sex: Female

DRUGS (6)
  1. GALFER [Concomitant]
     Active Substance: IRON
     Dosage: 337 MILLIGRAM, QD
     Route: 050
  2. PREDNISOLONE. [Concomitant]
     Active Substance: PREDNISOLONE
     Dosage: 6 MILLIGRAM, QD
     Route: 050
  3. VITAMIN D [ERGOCALCIFEROL] [Concomitant]
     Active Substance: ERGOCALCIFEROL
     Dosage: 500 MILLIGRAM, QD
     Route: 050
  4. AMGEVITA [Suspect]
     Active Substance: ADALIMUMAB
     Indication: CROHN^S DISEASE
     Dosage: 80 MICROGRAM
     Route: 058
     Dates: start: 20191230
  5. FOLIC ACID. [Concomitant]
     Active Substance: FOLIC ACID
     Dosage: 5 MILLIGRAM, QD
     Route: 050
  6. MARVIOL [Concomitant]
     Dosage: 1 MILLIGRAM, QD
     Route: 050

REACTIONS (9)
  - Infection [Unknown]
  - Tonsillitis [Recovered/Resolved]
  - Crohn^s disease [Not Recovered/Not Resolved]
  - Insomnia [Not Recovered/Not Resolved]
  - Depression [Not Recovered/Not Resolved]
  - Mood swings [Not Recovered/Not Resolved]
  - Fungal infection [Recovered/Resolved]
  - Alopecia [Unknown]
  - Off label use [Not Recovered/Not Resolved]

NARRATIVE: CASE EVENT DATE: 20191230
